FAERS Safety Report 17706630 (Version 2)
Quarter: 2020Q3

REPORT INFORMATION
  Report Type: Report from Study
  Country: DE (occurrence: DE)
  Receive Date: 20200424
  Receipt Date: 20200731
  Transmission Date: 20201102
  Serious: Yes (Hospitalization)
  Sender: FDA-Public Use
  Company Number: DE-BAUSCH-BL-2020-012047

PATIENT
  Age: 73 Year
  Sex: Female
  Weight: 60 kg

DRUGS (26)
  1. DARATUMUMAB [Suspect]
     Active Substance: DARATUMUMAB
     Dosage: BATCH NUMBERS: UNKNOWN,IHS2V00,IFSAT28,IGS3Y09,IFS
     Route: 065
     Dates: start: 20190218
  2. DARATUMUMAB [Suspect]
     Active Substance: DARATUMUMAB
     Dosage: BATCH NUMBERS: UNKNOWN,IHS2V00,IFSAT28,IGS3Y09,IFS
     Route: 065
     Dates: start: 20190304, end: 20190311
  3. DARATUMUMAB [Suspect]
     Active Substance: DARATUMUMAB
     Dosage: BATCH NUMBERS: UNKNOWN,IHS2V00,IFSAT28,IGS3Y09,IFS
     Route: 065
     Dates: start: 20190318
  4. DARATUMUMAB [Suspect]
     Active Substance: DARATUMUMAB
     Dosage: BATCH NUMBERS: UNKNOWN,IHS2V00,IFSAT28,IGS3Y09,IFS
     Route: 065
     Dates: start: 20190318
  5. DARATUMUMAB [Suspect]
     Active Substance: DARATUMUMAB
     Dosage: BATCH NUMBERS: UNKNOWN,IHS2V00,IFSAT28,IGS3Y09,IFS
     Route: 065
     Dates: start: 20190318
  6. DARATUMUMAB [Suspect]
     Active Substance: DARATUMUMAB
     Dosage: BATCH NUMBERS: UNKNOWN,IHS2V00,IFSAT28,IGS3Y09,IFS
     Route: 065
     Dates: start: 20190423
  7. DEXAMETHASONE. [Suspect]
     Active Substance: DEXAMETHASONE
     Indication: PLASMA CELL MYELOMA
     Route: 065
     Dates: start: 20190304, end: 20190426
  8. DARATUMUMAB [Suspect]
     Active Substance: DARATUMUMAB
     Indication: PLASMA CELL MYELOMA
     Dosage: BATCH NUMBERS: UNKNOWN,IHS2V00,IFSAT28,IGS3Y09,IFS
     Route: 065
     Dates: start: 20190211
  9. DARATUMUMAB [Suspect]
     Active Substance: DARATUMUMAB
     Dosage: BATCH NUMBERS: UNKNOWN,IHS2V00,IFSAT28,IGS3Y09,IFS
     Route: 065
     Dates: start: 20190311
  10. DARATUMUMAB [Suspect]
     Active Substance: DARATUMUMAB
     Dosage: BATCH NUMBERS: UNKNOWN,IHS2V00,IFSAT28,IGS3Y09,IFS
     Route: 065
     Dates: start: 20190506
  11. DARATUMUMAB [Suspect]
     Active Substance: DARATUMUMAB
     Dosage: BATCH NUMBERS: UNKNOWN,IHS2V00,IFSAT28,IGS3Y09,IFS
     Route: 065
     Dates: start: 20190225
  12. DARATUMUMAB [Suspect]
     Active Substance: DARATUMUMAB
     Dosage: BATCH NUMBERS: UNKNOWN,IHS2V00,IFSAT28,IGS3Y09,IFS
     Route: 065
     Dates: start: 20190304
  13. DARATUMUMAB [Suspect]
     Active Substance: DARATUMUMAB
     Dosage: BATCH NUMBERS: UNKNOWN,IHS2V00,IFSAT28,IGS3Y09,IFS
     Route: 065
     Dates: start: 20190415
  14. DARATUMUMAB [Suspect]
     Active Substance: DARATUMUMAB
     Dosage: BATCH NUMBERS: UNKNOWN,IHS2V00,IFSAT28,IGS3Y09,IFS
     Route: 065
     Dates: start: 20190423
  15. DARATUMUMAB [Suspect]
     Active Substance: DARATUMUMAB
     Dosage: BATCH NUMBERS: UNKNOWN,IHS2V00,IFSAT28,IGS3Y09,IFS
     Route: 065
     Dates: start: 20190513
  16. DARATUMUMAB [Suspect]
     Active Substance: DARATUMUMAB
     Dosage: BATCH NUMBERS: UNKNOWN,IHS2V00,IFSAT28,IGS3Y09,IFS
     Route: 065
     Dates: start: 20190211
  17. DARATUMUMAB [Suspect]
     Active Substance: DARATUMUMAB
     Dosage: BATCH NUMBERS: UNKNOWN,IHS2V00,IFSAT28,IGS3Y09,IFS
     Route: 065
     Dates: start: 20190225
  18. DARATUMUMAB [Suspect]
     Active Substance: DARATUMUMAB
     Dosage: BATCH NUMBERS: UNKNOWN,IHS2V00,IFSAT28,IGS3Y09,IFS
     Route: 065
     Dates: start: 20190311
  19. DARATUMUMAB [Suspect]
     Active Substance: DARATUMUMAB
     Dosage: BATCH NUMBERS: UNKNOWN,IHS2V00,IFSAT28,IGS3Y09,IFS
     Route: 065
     Dates: start: 20190430
  20. DARATUMUMAB [Suspect]
     Active Substance: DARATUMUMAB
     Dosage: BATCH NUMBERS: UNKNOWN,IHS2V00,IFSAT28,IGS3Y09,IFS
     Route: 065
     Dates: start: 20190304
  21. DARATUMUMAB [Suspect]
     Active Substance: DARATUMUMAB
     Dosage: BATCH NUMBERS: UNKNOWN,IHS2V00,IFSAT28,IGS3Y09,IFS
     Route: 065
     Dates: start: 20190403
  22. DARATUMUMAB [Suspect]
     Active Substance: DARATUMUMAB
     Dosage: BATCH NUMBERS: UNKNOWN,IHS2V00,IFSAT28,IGS3Y09,IFS
     Route: 065
     Dates: start: 20190415
  23. DARATUMUMAB [Suspect]
     Active Substance: DARATUMUMAB
     Dosage: BATCH NUMBERS: UNKNOWN,IHS2V00,IFSAT28,IGS3Y09,IFS
     Route: 065
     Dates: start: 20190218
  24. DARATUMUMAB [Suspect]
     Active Substance: DARATUMUMAB
     Dosage: BATCH NUMBERS: UNKNOWN,IHS2V00,IFSAT28,IGS3Y09,IFS
     Route: 065
     Dates: start: 20190513
  25. NOVALGIN [Concomitant]
     Indication: PRODUCT USED FOR UNKNOWN INDICATION
  26. VELCADE [Suspect]
     Active Substance: BORTEZOMIB
     Indication: PLASMA CELL MYELOMA
     Dosage: 2,1 MG
     Route: 065
     Dates: start: 20190211, end: 20190425

REACTIONS (1)
  - Pneumonia [Recovering/Resolving]

NARRATIVE: CASE EVENT DATE: 20190318
